FAERS Safety Report 12530693 (Version 1)
Quarter: 2016Q3

REPORT INFORMATION
  Report Type: Spontaneous
  Country: US (occurrence: None)
  Receive Date: 20160705
  Receipt Date: 20160705
  Transmission Date: 20161109
  Serious: Yes (Hospitalization)
  Sender: FDA-Public Use
  Company Number: None

PATIENT
  Age: 36 Year
  Sex: Male
  Weight: 109.5 kg

DRUGS (1)
  1. WARFARIN [Suspect]
     Active Substance: WARFARIN
     Indication: AORTIC VALVE REPLACEMENT
     Dosage: MG PO
     Route: 048
     Dates: start: 20160331

REACTIONS (6)
  - Acute kidney injury [None]
  - Haematuria [None]
  - Flank pain [None]
  - Anaemia [None]
  - International normalised ratio abnormal [None]
  - Cystitis [None]

NARRATIVE: CASE EVENT DATE: 20160628
